FAERS Safety Report 14240750 (Version 1)
Quarter: 2017Q4

REPORT INFORMATION
  Report Type: Spontaneous
  Country: TR (occurrence: TR)
  Receive Date: 20171130
  Receipt Date: 20171130
  Transmission Date: 20180321
  Serious: Yes (Life-Threatening, Hospitalization, Other)
  Sender: FDA-Public Use
  Company Number: TR-MYLANLABS-2017M1075227

PATIENT
  Age: 36 Year
  Sex: Female

DRUGS (1)
  1. PROPAFENONE. [Suspect]
     Active Substance: PROPAFENONE
     Indication: SUICIDE ATTEMPT
     Dosage: 36 TABLETS OF PROPAFENONE 150MG
     Route: 065

REACTIONS (8)
  - Suicide attempt [Unknown]
  - Loss of consciousness [Unknown]
  - Generalised tonic-clonic seizure [Unknown]
  - Hypotension [Unknown]
  - Electrocardiogram abnormal [Recovered/Resolved]
  - Overdose [Unknown]
  - Cardiomyopathy [Unknown]
  - Cardiac arrest [Recovered/Resolved]
